FAERS Safety Report 6178073-8 (Version None)
Quarter: 2009Q2

REPORT INFORMATION
  Report Type: 
  Country: None (occurrence: None)
  Receive Date: 20090504
  Receipt Date: 20090130
  Transmission Date: 20091009
  Serious: No
  Sender: FDA-Public Use
  Company Number: US-ALEXION-A200900088

PATIENT
  Sex: Female

DRUGS (6)
  1. SOLIRIS [Suspect]
     Indication: PAROXYSMAL NOCTURNAL HAEMOGLOBINURIA
     Dosage: 600 MG, QW
     Route: 042
     Dates: start: 20070502, end: 20070523
  2. SOLIRIS [Suspect]
     Dosage: 900 MG, Q2W
     Route: 042
     Dates: start: 20070530
  3. AMITRIPTLINE HYDROCHLORIDE TAB [Concomitant]
     Indication: PAIN
     Dosage: 25 MG, QD
     Route: 048
     Dates: start: 20090201
  4. PREDNISONE [Concomitant]
     Dosage: 10 MG, QOD
  5. PREDNISONE [Concomitant]
     Dosage: 20 MG, QD FOR 2 WK
  6. EXJADE [Concomitant]
     Indication: BLOOD IRON
     Dosage: UNK

REACTIONS (10)
  - BLOOD LACTATE DEHYDROGENASE INCREASED [None]
  - DYSPNOEA [None]
  - HAEMATOCRIT DECREASED [None]
  - HAEMOGLOBIN DECREASED [None]
  - HAEMOLYSIS [None]
  - MUSCLE SPASMS [None]
  - OESOPHAGEAL SPASM [None]
  - PLATELET COUNT DECREASED [None]
  - RETICULOCYTE COUNT INCREASED [None]
  - SERUM FERRITIN INCREASED [None]
